FAERS Safety Report 4520260-6 (Version None)
Quarter: 2005Q1

REPORT INFORMATION
  Report Type: 
  Country: None (occurrence: None)
  Receive Date: 20041028
  Receipt Date: 20040716
  Transmission Date: 20050727
  Serious: Yes (Other)
  Sender: FDA-Public Use
  Company Number: HQWYE344022JUL04

PATIENT
  Age: 57 Year
  Sex: Female

DRUGS (2)
  1. PREMARIN [Suspect]
     Dates: start: 19870101, end: 19990501
  2. PROVERA [Suspect]
     Dates: start: 19870101, end: 19870501

REACTIONS (1)
  - BREAST CANCER [None]
